FAERS Safety Report 25763886 (Version 1)
Quarter: 2025Q3

REPORT INFORMATION
  Report Type: Spontaneous
  Country: US (occurrence: US)
  Receive Date: 20250905
  Receipt Date: 20250905
  Transmission Date: 20251021
  Serious: No
  Sender: DOMPE FARMACEUTICI
  Company Number: US-FARMAPROD-202411-3867

PATIENT
  Sex: Female

DRUGS (8)
  1. OXERVATE [Suspect]
     Active Substance: CENEGERMIN-BKBJ
     Indication: Neurotrophic keratopathy
     Route: 047
     Dates: start: 20241002
  2. MIEBO [Concomitant]
     Active Substance: PERFLUOROHEXYLOCTANE
  3. MAGNESIUM [Concomitant]
     Active Substance: MAGNESIUM
  4. FAMOTIDINE [Concomitant]
     Active Substance: FAMOTIDINE
  5. NP THYROID [Concomitant]
     Active Substance: LEVOTHYROXINE\LIOTHYRONINE
  6. ARIPIPRAZOLE [Concomitant]
     Active Substance: ARIPIPRAZOLE
  7. ESCITALOPRAM OXALATE [Concomitant]
     Active Substance: ESCITALOPRAM OXALATE
  8. MULTIVITAMIN 50 PLUS [Concomitant]

REACTIONS (2)
  - Eye irritation [Unknown]
  - Eye swelling [Unknown]
